FAERS Safety Report 9453285 (Version 1)
Quarter: 2013Q3

REPORT INFORMATION
  Report Type: Spontaneous
  Country: NZ (occurrence: NZ)
  Receive Date: 20130812
  Receipt Date: 20130812
  Transmission Date: 20140515
  Serious: Yes (Other)
  Sender: FDA-Public Use
  Company Number: NZ-PFIZER INC-2013230663

PATIENT
  Age: 67 Year
  Sex: Female

DRUGS (4)
  1. ATORVASTATIN CALCIUM [Suspect]
     Dosage: UNK
  2. CILAZAPRIL [Concomitant]
  3. FELODIPINE [Concomitant]
  4. METFORMIN HYDROCHLORIDE [Concomitant]

REACTIONS (4)
  - Systemic lupus erythematosus [Unknown]
  - Antinuclear antibody positive [Unknown]
  - Muscular weakness [Unknown]
  - Myalgia [Unknown]
